FAERS Safety Report 6839696-3 (Version None)
Quarter: 2010Q3

REPORT INFORMATION
  Report Type: 
  Country: None (occurrence: None)
  Receive Date: 20100714
  Receipt Date: 20100705
  Transmission Date: 20110219
  Serious: Yes (Life-Threatening, Hospitalization)
  Sender: FDA-Public Use
  Company Number: DE-AMGEN-US379073

PATIENT
  Sex: Female
  Weight: 67 kg

DRUGS (23)
  1. ENBREL [Suspect]
     Indication: RHEUMATOID ARTHRITIS
     Dosage: LYOPHILIZED, 50 MG ONE TIME PER WEEK
     Route: 058
     Dates: start: 20021101
  2. ENBREL [Suspect]
     Dosage: PRE-FILLED SYRINGE, 50 MG ONE TIME PER WEEK
     Route: 058
     Dates: end: 20100101
  3. ENBREL [Suspect]
     Dosage: PRE-FILLED SYRINGE, 50MG ONE TIME PER WEEK
     Route: 058
     Dates: start: 20100701
  4. SYNTESTAN [Concomitant]
     Indication: RHEUMATOID ARTHRITIS
     Dosage: FROM AN UNKNOWN DATE (EARLIER THAN 2001) FOR 3 WEEKS 10MG PER DAY AND THEN 5MG PER DAY
     Route: 048
  5. ARCOXIA [Concomitant]
  6. NEXIUM [Concomitant]
  7. PRAVASTATIN SODIUM [Concomitant]
  8. EZETROL [Concomitant]
  9. TOCOPHEROL CONCENTRATE CAP [Concomitant]
     Dosage: 1200 IU (FREQUENCY UNKNOWN)
  10. STANGYL [Concomitant]
     Dosage: ONE DOSE FORM ONE TIME PER DAY
  11. LEVOTHYROXINE SODIUM [Concomitant]
  12. JODETTEN [Concomitant]
  13. TROMCARDIN FORTE [Concomitant]
     Dosage: ONE DOSE FORM THREE TIMES PER DAY
  14. DELIX PLUS [Concomitant]
     Dosage: 5MG/25MG ONE TIME PER DAY
  15. ATENOLOL [Concomitant]
     Dosage: 25MG IN THE MORNING AND 12.5MG IN THE EVENING
  16. VIGANTOLETTEN [Concomitant]
  17. WOBENZYM [Concomitant]
  18. LIQUIFILM [Concomitant]
     Dosage: ONE DOSE 5-6 TIMES PER DAY
  19. CALCIUM [Concomitant]
  20. COLDASTOP [Concomitant]
     Dosage: ONE DOSE 3-4 TIMES PER DAY
  21. PLAVIX [Concomitant]
  22. OXYGESIC [Concomitant]
  23. PREDNISOLONE [Concomitant]
     Indication: RHEUMATOID ARTHRITIS
     Dosage: 2.5 - 5 MG ONE TIME DAILY, THEN 5-7.5MG DAILY AND ACTUAL DOSE IS 10MG PER DAY
     Route: 048

REACTIONS (7)
  - BLOOD PRESSURE FLUCTUATION [None]
  - BREAST CANCER [None]
  - CONDITION AGGRAVATED [None]
  - IMPAIRED HEALING [None]
  - INFECTION [None]
  - RHEUMATOID ARTHRITIS [None]
  - SKIN LACERATION [None]
